FAERS Safety Report 15169166 (Version 2)
Quarter: 2018Q3

REPORT INFORMATION
  Report Type: Report from Study
  Country: None (occurrence: US)
  Receive Date: 20180720
  Receipt Date: 20180903
  Transmission Date: 20181010
  Serious: Yes (Hospitalization, Other)
  Sender: FDA-Public Use
  Company Number: US-ABBVIE-18K-163-2423115-00

PATIENT
  Sex: Female

DRUGS (2)
  1. HUMIRA [Suspect]
     Active Substance: ADALIMUMAB
     Indication: PSORIASIS
     Route: 058
     Dates: start: 201804, end: 201808
  2. OMEPRAZOLE. [Concomitant]
     Active Substance: OMEPRAZOLE
     Indication: GASTROOESOPHAGEAL REFLUX DISEASE

REACTIONS (6)
  - Lymphadenopathy [Unknown]
  - Biliary colic [Unknown]
  - Pain in extremity [Not Recovered/Not Resolved]
  - Neutrophil count decreased [Unknown]
  - Muscle twitching [Not Recovered/Not Resolved]
  - Lymphocyte count increased [Unknown]
